FAERS Safety Report 9388812 (Version 1)
Quarter: 2013Q3

REPORT INFORMATION
  Report Type: Spontaneous
  Country: BR (occurrence: BR)
  Receive Date: 20130708
  Receipt Date: 20130708
  Transmission Date: 20140515
  Serious: Yes (Other)
  Sender: FDA-Public Use
  Company Number: BR-B.I. PHARMACEUTICALS,INC./RIDGEFIELD-2013-BR-00730BR

PATIENT
  Age: 67 Year
  Sex: Male

DRUGS (5)
  1. PRADAXA [Suspect]
     Indication: ATRIAL FIBRILLATION
     Dosage: 300 MG
     Route: 048
     Dates: start: 20130513, end: 20130523
  2. PRADAXA [Suspect]
     Dosage: 300 MG
     Route: 048
     Dates: end: 20130618
  3. SELOZOK [Concomitant]
     Indication: ATRIAL FIBRILLATION
     Dosage: 100 MG
     Dates: start: 2006
  4. PRESSAT [Concomitant]
     Indication: HYPERTENSION
     Dosage: 5 MG
     Dates: start: 2011
  5. ARADOIS [Concomitant]
     Indication: HYPERTENSION
     Dosage: 100 MG
     Dates: start: 2011

REACTIONS (3)
  - Hypertensive crisis [Recovered/Resolved]
  - Dengue fever [Recovered/Resolved]
  - Dyspnoea [Recovered/Resolved]
